FAERS Safety Report 8417878-7 (Version None)
Quarter: 2012Q2

REPORT INFORMATION
  Report Type: 
  Country: None (occurrence: None)
  Receive Date: 20120607
  Receipt Date: 20120531
  Transmission Date: 20120825
  Serious: Yes (Other)
  Sender: FDA-Public Use
  Company Number: US-PFIZER INC-2012132421

PATIENT
  Sex: Female
  Weight: 109 kg

DRUGS (4)
  1. VERAPAMIL [Concomitant]
     Indication: HYPERTENSION
     Dosage: 80 MG, 2X/DAY
  2. GLIMEPIRIDE [Suspect]
     Indication: DIABETES MELLITUS
     Dosage: 4 MG, DAILY
  3. LIPITOR [Suspect]
     Indication: BLOOD CHOLESTEROL INCREASED
     Dosage: 20 MG, DAILY
     Dates: start: 20120501, end: 20120527
  4. LANTUS [Suspect]
     Indication: DIABETES MELLITUS
     Dosage: 14 IU, DAILY

REACTIONS (3)
  - DIZZINESS [None]
  - HEADACHE [None]
  - BLOOD GLUCOSE INCREASED [None]
